FAERS Safety Report 23916938 (Version 1)
Quarter: 2024Q2

REPORT INFORMATION
  Report Type: Spontaneous
  Country: IT (occurrence: IT)
  Receive Date: 20240529
  Receipt Date: 20240529
  Transmission Date: 20240716
  Serious: Yes (Other)
  Sender: FDA-Public Use
  Company Number: IT-MYLANLABS-2024M1048752

PATIENT
  Age: 20 Year
  Sex: Female

DRUGS (4)
  1. EZETIMIBE [Suspect]
     Active Substance: EZETIMIBE
     Indication: Hypercholesterolaemia
     Dosage: 10 MILLIGRAM, QD
     Route: 065
  2. SIMVASTATIN [Suspect]
     Active Substance: SIMVASTATIN
     Indication: Hypercholesterolaemia
     Dosage: UNK, LOW DOSE
     Route: 065
  3. ATORVASTATIN [Suspect]
     Active Substance: ATORVASTATIN
     Indication: Hypercholesterolaemia
     Dosage: UNK, LOW DOSE
     Route: 065
  4. LOVASTATIN [Suspect]
     Active Substance: LOVASTATIN
     Indication: Hypercholesterolaemia
     Dosage: UNK, LOW DOSE
     Route: 065

REACTIONS (2)
  - Drug ineffective [Unknown]
  - Myalgia [Unknown]

NARRATIVE: CASE EVENT DATE: 20190101
